FAERS Safety Report 16932451 (Version 1)
Quarter: 2019Q4

REPORT INFORMATION
  Report Type: Spontaneous
  Country: US (occurrence: US)
  Receive Date: 20191017
  Receipt Date: 20191017
  Transmission Date: 20200122
  Serious: No
  Sender: FDA-Public Use
  Company Number: US-ROCHE-2204524

PATIENT
  Sex: Male

DRUGS (1)
  1. ZELBORAF [Suspect]
     Active Substance: VEMURAFENIB
     Indication: MALIGNANT MELANOMA
     Dosage: 480MG/240 MG AM/PM
     Route: 048
     Dates: start: 20170912

REACTIONS (5)
  - Constipation [Unknown]
  - Chills [Unknown]
  - Balance disorder [Unknown]
  - Pyrexia [Unknown]
  - Decreased appetite [Unknown]
